FAERS Safety Report 11371698 (Version 1)
Quarter: 2015Q3

REPORT INFORMATION
  Report Type: Spontaneous
  Country: US (occurrence: US)
  Receive Date: 20150812
  Receipt Date: 20150812
  Transmission Date: 20151125
  Serious: No
  Sender: FDA-Public Use
  Company Number: ALCN2015US004961

PATIENT
  Age: 74 Year
  Sex: Female

DRUGS (1)
  1. SYSTANE PF [Suspect]
     Active Substance: POLYETHYLENE GLYCOL 400\PROPYLENE GLYCOL
     Indication: EYE IRRITATION
     Dosage: UNK
     Route: 047
     Dates: start: 20150806, end: 20150807

REACTIONS (1)
  - Vision blurred [Recovering/Resolving]

NARRATIVE: CASE EVENT DATE: 20150807
